FAERS Safety Report 18691431 (Version 1)
Quarter: 2021Q1

REPORT INFORMATION
  Report Type: Spontaneous
  Country: US (occurrence: US)
  Receive Date: 20210101
  Receipt Date: 20210101
  Transmission Date: 20210419
  Serious: No
  Sender: FDA-Public Use
  Company Number: US-ALKERMES INC.-ALK-2020-005863

PATIENT
  Sex: Female

DRUGS (1)
  1. ARISTADA [Suspect]
     Active Substance: ARIPIPRAZOLE LAUROXIL
     Indication: SCHIZOPHRENIA
     Dosage: 1064 MILLIGRAM, Q8WK
     Route: 030
     Dates: start: 201908

REACTIONS (5)
  - Hallucination, visual [Not Recovered/Not Resolved]
  - Anxiety [Not Recovered/Not Resolved]
  - Hallucination [Not Recovered/Not Resolved]
  - Paranoia [Not Recovered/Not Resolved]
  - Stress [Not Recovered/Not Resolved]
